FAERS Safety Report 20040839 (Version 3)
Quarter: 2021Q4

REPORT INFORMATION
  Report Type: Spontaneous
  Country: US (occurrence: US)
  Receive Date: 20211107
  Receipt Date: 20211222
  Transmission Date: 20220303
  Serious: No
  Sender: FDA-Public Use
  Company Number: US-SA-SAC20211101000692

PATIENT
  Age: 56 Year
  Sex: Female

DRUGS (2)
  1. CERDELGA [Suspect]
     Active Substance: ELIGLUSTAT
     Indication: Gaucher^s disease
     Dosage: 84 MG, Q12H
     Route: 048
     Dates: start: 202110
  2. CERDELGA [Suspect]
     Active Substance: ELIGLUSTAT
     Dosage: 168 MG (DF), Q12H
     Route: 048
     Dates: start: 20211005, end: 20211110

REACTIONS (4)
  - Weight decreased [Unknown]
  - Constipation [Unknown]
  - Dizziness [Unknown]
  - Product prescribing error [Unknown]

NARRATIVE: CASE EVENT DATE: 20211001
